FAERS Safety Report 6898352-6 (Version None)
Quarter: 2010Q3

REPORT INFORMATION
  Report Type: 
  Country: None (occurrence: None)
  Receive Date: 20100802
  Receipt Date: 20071017
  Transmission Date: 20110219
  Serious: No
  Sender: FDA-Public Use
  Company Number: US-PFIZER INC-2007087771

PATIENT
  Sex: Female
  Weight: 94.3 kg

DRUGS (2)
  1. LYRICA [Suspect]
     Indication: NEUROPATHY PERIPHERAL
     Dates: start: 20070801
  2. NEURONTIN [Suspect]

REACTIONS (9)
  - BLOOD GLUCOSE INCREASED [None]
  - DIZZINESS [None]
  - DRY MOUTH [None]
  - FLUID RETENTION [None]
  - MALAISE [None]
  - PRURITUS GENERALISED [None]
  - RENAL PAIN [None]
  - VISION BLURRED [None]
  - WEIGHT INCREASED [None]
